FAERS Safety Report 20609496 (Version 1)
Quarter: 2022Q1

REPORT INFORMATION
  Report Type: Spontaneous
  Country: US (occurrence: US)
  Receive Date: 20220318
  Receipt Date: 20220318
  Transmission Date: 20220423
  Serious: Yes (Other)
  Sender: FDA-Public Use
  Company Number: US-CELLTRION INC.-2022US003040

PATIENT

DRUGS (2)
  1. TRUXIMA [Suspect]
     Active Substance: RITUXIMAB-ABBS
     Indication: Chronic graft versus host disease
     Dosage: 600 MILLIGRAM, ON DAY 1 (THERAPY WAS GIVING ON 18 MAR)
  2. TRUXIMA [Suspect]
     Active Substance: RITUXIMAB-ABBS
     Dosage: 600 MILLIGRAM, ON DAY 11 (THERAPY WAS GIVING ON 28 MAR)

REACTIONS (2)
  - Chronic graft versus host disease [Unknown]
  - Off label use [Unknown]
